FAERS Safety Report 8789692 (Version 4)
Quarter: 2013Q1

REPORT INFORMATION
  Report Type: Spontaneous
  Country: JP (occurrence: None)
  Receive Date: 20120906
  Receipt Date: 20121011
  Transmission Date: 20140127
  Serious: Yes (Hospitalization, Other)
  Sender: FDA-Public Use
  Company Number: ADR-2012-01627

PATIENT
  Age: 51 Year
  Sex: Female
  Weight: 51 kg

DRUGS (1)
  1. GABALON [Suspect]

REACTIONS (3)
  - Purulence [None]
  - Implant site infection [None]
  - Implant site abscess [None]
